FAERS Safety Report 15921323 (Version 2)
Quarter: 2019Q1

REPORT INFORMATION
  Report Type: Report from Study
  Country: US (occurrence: US)
  Receive Date: 20190205
  Receipt Date: 20190225
  Transmission Date: 20190417
  Serious: Yes (Other)
  Sender: FDA-Public Use
  Company Number: US-JAZZ-2019-US-000943

PATIENT
  Age: 17 Year
  Sex: Female

DRUGS (48)
  1. PREVACID [Concomitant]
     Active Substance: LANSOPRAZOLE
  2. ANUCORT-HC [Concomitant]
     Active Substance: HYDROCORTISONE ACETATE
  3. BYSTOLIC [Concomitant]
     Active Substance: NEBIVOLOL HYDROCHLORIDE
  4. CHLORELLA VULGARIS [Concomitant]
     Active Substance: CHLORELLA VULGARIS
  5. ZINGIBER OFFICINALE [Concomitant]
     Active Substance: GINGER
  6. OLIVE LEAF EXTRACT [Concomitant]
  7. XYREM [Suspect]
     Active Substance: SODIUM OXYBATE
     Indication: NARCOLEPSY
     Dosage: 2.25 G, BID
     Route: 048
     Dates: start: 201901, end: 201901
  8. HEPARIN [Concomitant]
     Active Substance: HEPARIN SODIUM
  9. METHYLCOBALAMIN. [Concomitant]
     Active Substance: METHYLCOBALAMIN
  10. N-ACETYL-L-CYSTEINE [Concomitant]
     Active Substance: ACETYLCYSTEINE
  11. PYRIDOSTIGMINE [Concomitant]
     Active Substance: PYRIDOSTIGMINE
  12. RETAINE HPMC [Concomitant]
     Active Substance: HYPROMELLOSE 2910 (4000 MPA.S)
  13. CYCLOBENZAPRINE. [Concomitant]
     Active Substance: CYCLOBENZAPRINE
  14. PLANTAGO OVATA [Concomitant]
     Active Substance: HERBALS\PLANTAGO OVATA LEAF
  15. MIRALAX [Concomitant]
     Active Substance: POLYETHYLENE GLYCOL 3350
  16. NAPROXEN. [Concomitant]
     Active Substance: NAPROXEN
  17. NUVIGIL [Concomitant]
     Active Substance: ARMODAFINIL
  18. XYREM [Suspect]
     Active Substance: SODIUM OXYBATE
     Indication: CATAPLEXY
     Dosage: 3 G, BID
     Route: 048
     Dates: start: 201901, end: 201901
  19. MODAFINIL. [Concomitant]
     Active Substance: MODAFINIL
  20. ASCORBIC ACID. [Concomitant]
     Active Substance: ASCORBIC ACID
  21. VITAMIN D3 [Concomitant]
     Active Substance: CHOLECALCIFEROL
  22. PHYTOMENADIONE [Concomitant]
     Active Substance: PHYTONADIONE
  23. CHARCOAL [Concomitant]
     Active Substance: ACTIVATED CHARCOAL
  24. GLUTATHIONE [Concomitant]
     Active Substance: GLUTATHIONE
  25. HEMP [Concomitant]
     Active Substance: HEMP
  26. IBUPROFEN. [Concomitant]
     Active Substance: IBUPROFEN
  27. LEVOCARNITINE. [Concomitant]
     Active Substance: LEVOCARNITINE
  28. NAUSEA CONTROL [Concomitant]
  29. NYSTATIN. [Concomitant]
     Active Substance: NYSTATIN
  30. OMEGA-3 FISH OIL [Concomitant]
     Active Substance: FISH OIL\OMEGA-3 FATTY ACIDS
  31. OXITRIPTAN [Concomitant]
     Active Substance: OXITRIPTAN
  32. AMINO ACID [Concomitant]
     Active Substance: AMINO ACIDS
  33. AZO CRANBERRY [Concomitant]
     Active Substance: DIETARY SUPPLEMENT
  34. FISH OIL [Concomitant]
     Active Substance: FISH OIL
  35. OREGANO OIL [Concomitant]
  36. PROTANDIM [Concomitant]
     Active Substance: DIETARY SUPPLEMENT
  37. SODIUM ACETATE. [Concomitant]
     Active Substance: SODIUM ACETATE
  38. BETAINE HCL [Concomitant]
  39. DESMOPRESSIN ACETATE. [Concomitant]
     Active Substance: DESMOPRESSIN ACETATE
  40. SODIUM CHLORIDE. [Concomitant]
     Active Substance: SODIUM CHLORIDE
  41. ACICLOVIR [Concomitant]
     Active Substance: ACYCLOVIR
  42. ALPHAGAN P [Concomitant]
     Active Substance: BRIMONIDINE TARTRATE
  43. L-LYSINE HCL [Concomitant]
  44. MAGNESIUM OXIDE. [Concomitant]
     Active Substance: MAGNESIUM OXIDE
  45. RHODIOLA ROSEA [Concomitant]
     Active Substance: HERBALS
  46. DIAZEPAM. [Concomitant]
     Active Substance: DIAZEPAM
  47. DIGESTIVE ENZYME [Concomitant]
     Active Substance: UNSPECIFIED INGREDIENT
  48. IMODIUM [Concomitant]
     Active Substance: LOPERAMIDE HYDROCHLORIDE

REACTIONS (5)
  - Throat irritation [Not Recovered/Not Resolved]
  - Gastrooesophageal reflux disease [Not Recovered/Not Resolved]
  - Condition aggravated [Not Recovered/Not Resolved]
  - Tonsillar disorder [Not Recovered/Not Resolved]
  - Seizure [Unknown]

NARRATIVE: CASE EVENT DATE: 200901
